FAERS Safety Report 9378026 (Version 1)
Quarter: 2013Q4

REPORT INFORMATION
  Report Type: Spontaneous
  Country: CA (occurrence: None)
  Receive Date: 20130625
  Receipt Date: 20130625
  Transmission Date: 20140711
  Serious: Yes (Other)
  Sender: FDA-Public Use
  Company Number: 2013000137

PATIENT
  Age: 64 Year
  Sex: Female
  Weight: 76.02 kg

DRUGS (4)
  1. ACEON (PERINODOPRIL ERBUMINE) [Suspect]
     Indication: HYPERTENSION
     Route: 048
     Dates: start: 20130410, end: 20130426
  2. INDAPAMIDE W/PERINDOPRIL [Suspect]
     Indication: HYPERTENSION
     Route: 048
     Dates: start: 20130318, end: 20130409
  3. METOPROLOL [Concomitant]
  4. AMLODIPINE [Concomitant]

REACTIONS (3)
  - Drug ineffective [None]
  - Blood pressure inadequately controlled [None]
  - Hyponatraemia [None]
